FAERS Safety Report 5243727-4 (Version None)
Quarter: 2007Q1

REPORT INFORMATION
  Report Type: 
  Country: None (occurrence: None)
  Receive Date: 20070222
  Receipt Date: 20070214
  Transmission Date: 20070707
  Serious: Yes (Other)
  Sender: FDA-Public Use
  Company Number: PHNU2006DE03557

PATIENT
  Sex: Female
  Weight: 55 kg

DRUGS (3)
  1. ZOMETA [Suspect]
     Indication: METASTASES TO BONE
     Dosage: 4 MG, QMO
     Route: 042
     Dates: start: 20030501, end: 20061101
  2. AREDIA [Suspect]
     Indication: METASTASES TO BONE
     Dosage: 90 MG, QMO
     Route: 042
     Dates: start: 20010401, end: 20030501
  3. AROMASIN [Concomitant]
     Route: 065
     Dates: start: 20050101

REACTIONS (4)
  - BONE DISORDER [None]
  - LOOSE TOOTH [None]
  - PERIODONTITIS [None]
  - TOOTH ABSCESS [None]
